FAERS Safety Report 7724820-0 (Version None)
Quarter: 2011Q3

REPORT INFORMATION
  Report Type: 
  Country: None (occurrence: None)
  Receive Date: 20110901
  Receipt Date: 20110826
  Transmission Date: 20111222
  Serious: Yes (Hospitalization)
  Sender: FDA-Public Use
  Company Number: US-ABBOTT-11P-163-0849940-00

PATIENT
  Age: 52 Year
  Sex: Male
  Weight: 106.69 kg

DRUGS (5)
  1. ALKA SELTZER [Concomitant]
     Indication: DYSPEPSIA
  2. HUMIRA [Suspect]
     Indication: PSORIASIS
     Dates: start: 20110201
  3. TRIAMCINOLONE [Concomitant]
     Indication: PRODUCT USED FOR UNKNOWN INDICATION
     Dosage: AFFECTED AREAS EVERY DAY
  4. GABAPENTIN [Suspect]
     Indication: TRIGEMINAL NERVE DISORDER
     Dosage: ONE AT BEDTIME
  5. VICODIN [Concomitant]
     Indication: BACK PAIN
     Dosage: 10/500 MG ONE PILL EVERY SIX HOURS

REACTIONS (9)
  - INJURY [None]
  - INCORRECT DOSE ADMINISTERED [None]
  - DIABETES MELLITUS [None]
  - PAIN IN EXTREMITY [None]
  - SOMNOLENCE [None]
  - PSORIASIS [None]
  - WOUND SECRETION [None]
  - SKIN INFECTION [None]
  - DRUG EFFECT DELAYED [None]
